FAERS Safety Report 4576562-0 (Version None)
Quarter: 2005Q1

REPORT INFORMATION
  Report Type: 
  Country: None (occurrence: None)
  Receive Date: 20050119
  Receipt Date: 20031202
  Transmission Date: 20050727
  Serious: Yes (Disabling)
  Sender: FDA-Public Use
  Company Number: A03200302473

PATIENT
  Age: 55 Year
  Sex: Female
  Weight: 74.8435 kg

DRUGS (21)
  1. PLAVIX [Suspect]
     Indication: CEREBROVASCULAR ACCIDENT
     Dosage: 75 MG QD - ORAL
     Route: 048
     Dates: start: 20030703, end: 20031001
  2. PLAVIX [Suspect]
     Indication: CEREBROVASCULAR ACCIDENT PROPHYLAXIS
     Dosage: 75 MG QD - ORAL
     Route: 048
     Dates: start: 20030703, end: 20031001
  3. PROPOXYPHENE HCL AND ACETAMINOPHEN [Concomitant]
  4. PREDNISONE [Concomitant]
  5. SULFSALAZINE [Concomitant]
  6. ACEBUTOLOL [Concomitant]
  7. OMEPRAZOLE [Concomitant]
  8. NITROFURANTOIN [Concomitant]
  9. ESTRADIOL [Concomitant]
  10. ALENDRONATE SODIUM [Concomitant]
  11. VITAMIN B-12 [Concomitant]
  12. DIPHENOXYLATE HCL + ATROPINE SULFATE [Concomitant]
  13. LOPERAMIDE HYDROCHLORIDE [Concomitant]
  14. ONDANSETRON HYDROCHLORIDE [Concomitant]
  15. MULTI-VITAMINS [Concomitant]
  16. VITAMIN C [Concomitant]
  17. IRON [Concomitant]
  18. THIAMINE HCL [Concomitant]
  19. VITAMIN B6 [Concomitant]
  20. CALCIUM + MAGNESIUM [Concomitant]
  21. VITAMIN D [Concomitant]

REACTIONS (1)
  - ARTHRALGIA [None]
